FAERS Safety Report 17191782 (Version 1)
Quarter: 2019Q4

REPORT INFORMATION
  Report Type: Spontaneous
  Country: GB (occurrence: GB)
  Receive Date: 20191223
  Receipt Date: 20191223
  Transmission Date: 20200122
  Serious: Yes (Hospitalization)
  Sender: FDA-Public Use
  Company Number: GB-PFIZER INC-2019547200

PATIENT

DRUGS (1)
  1. AMLODIPINE BESILATE [Suspect]
     Active Substance: AMLODIPINE BESYLATE
     Dosage: UNK
     Route: 065

REACTIONS (7)
  - Overdose [Unknown]
  - Peripheral swelling [Unknown]
  - Incorrect dose administered [Unknown]
  - Dyspnoea [Unknown]
  - Pulmonary oedema [Unknown]
  - Product dispensing error [Unknown]
  - Fluid retention [Unknown]
